FAERS Safety Report 12474352 (Version 1)
Quarter: 2016Q2

REPORT INFORMATION
  Report Type: Spontaneous
  Country: US (occurrence: None)
  Receive Date: 20160616
  Receipt Date: 20160616
  Transmission Date: 20160815
  Serious: Yes (Disabling)
  Sender: FDA-Public Use
  Company Number: None

PATIENT
  Age: 51 Year
  Sex: Male
  Weight: 73.48 kg

DRUGS (11)
  1. HYDROCODONE [Concomitant]
     Active Substance: HYDROCODONE
  2. LEVAQUIN [Suspect]
     Active Substance: LEVOFLOXACIN
     Indication: INFECTION PROPHYLAXIS
     Route: 048
     Dates: start: 20100325, end: 20100501
  3. SULFASALAZINE. [Concomitant]
     Active Substance: SULFASALAZINE
  4. FLONASE [Concomitant]
     Active Substance: FLUTICASONE PROPIONATE
  5. KRILL OIL [Concomitant]
     Active Substance: DIETARY SUPPLEMENT
  6. COQ10 [Concomitant]
     Active Substance: UBIDECARENONE
  7. BACLOFEN. [Concomitant]
     Active Substance: BACLOFEN
  8. TRAMADOL. [Concomitant]
     Active Substance: TRAMADOL
  9. LYRICA [Concomitant]
     Active Substance: PREGABALIN
  10. GLUCOSAMINE/CHONDROITIN [Concomitant]
  11. VITAMIN D [Concomitant]
     Active Substance: CHOLECALCIFEROL

REACTIONS (4)
  - Neuralgia [None]
  - Back pain [None]
  - Impaired work ability [None]
  - Tendonitis [None]

NARRATIVE: CASE EVENT DATE: 20100325
